FAERS Safety Report 7023316-1 (Version None)
Quarter: 2010Q3

REPORT INFORMATION
  Report Type: 
  Country: None (occurrence: None)
  Receive Date: 20100930
  Receipt Date: 20100924
  Transmission Date: 20110219
  Serious: Yes (Hospitalization)
  Sender: FDA-Public Use
  Company Number: AR-AMGEN-QUU435744

PATIENT
  Sex: Female
  Weight: 43 kg

DRUGS (7)
  1. ENBREL [Suspect]
     Indication: RHEUMATOID ARTHRITIS
     Route: 058
     Dates: start: 20061110, end: 20100826
  2. METHOTREXATE [Concomitant]
     Indication: PRODUCT USED FOR UNKNOWN INDICATION
     Dosage: 10/MG/2 TABLETS/WEEKLY EVERY SATURDAY
     Route: 065
  3. CALCIUM [Concomitant]
     Dosage: UNK/MG/TABLETS/TWO TIMES DAILY BY EVENING
  4. ALPRAZOLAM [Concomitant]
     Indication: PRODUCT USED FOR UNKNOWN INDICATION
     Dosage: UNKNOWN
     Route: 065
  5. OMEPRAZOLE [Concomitant]
  6. FOLIC ACID [Concomitant]
     Indication: PRODUCT USED FOR UNKNOWN INDICATION
     Dosage: 5/MG/TABLETS/EVERY TUESDAY
     Route: 065
  7. OXADISTEN [Concomitant]
     Indication: PRODUCT USED FOR UNKNOWN INDICATION
     Dosage: UNK/TABLETS/WITH BREAKFAST AND LUNCH
     Route: 065

REACTIONS (8)
  - BACK PAIN [None]
  - BREAST CYST [None]
  - CONDITION AGGRAVATED [None]
  - NODULE [None]
  - PULMONARY FIBROSIS [None]
  - RHEUMATOID ARTHRITIS [None]
  - TUBERCULOSIS [None]
  - WHITE BLOOD CELL COUNT INCREASED [None]
